FAERS Safety Report 6172960-2 (Version None)
Quarter: 2009Q2

REPORT INFORMATION
  Report Type: 
  Country: None (occurrence: None)
  Receive Date: 20090430
  Receipt Date: 20090421
  Transmission Date: 20091009
  Serious: Yes (Hospitalization)
  Sender: FDA-Public Use
  Company Number: FR-AVENTIS-200912211EU

PATIENT
  Age: 73 Year
  Sex: Male

DRUGS (2)
  1. FLUDEX                             /00340101/ [Suspect]
     Dosage: DOSE: UNK
     Route: 048
     Dates: start: 20090220, end: 20090305
  2. MONO-TILDIEM [Suspect]
     Dosage: DOSE: UNK
     Route: 048
     Dates: start: 20090220, end: 20090305

REACTIONS (2)
  - ECZEMA [None]
  - PRURITUS [None]
